FAERS Safety Report 9046274 (Version 1)
Quarter: 2013Q1

REPORT INFORMATION
  Report Type: Spontaneous
  Country: US (occurrence: None)
  Receive Date: 20130128
  Receipt Date: 20130128
  Transmission Date: 20140127
  Serious: No
  Sender: FDA-Public Use
  Company Number: None

PATIENT
  Age: 60 Year
  Sex: Male
  Weight: 91.9 kg

DRUGS (1)
  1. CIPROFLOXACIN [Suspect]
     Route: 048
     Dates: start: 20120904, end: 20120919

REACTIONS (4)
  - Rash [None]
  - Hepatic enzyme increased [None]
  - Lymphoma [None]
  - Metastatic malignant melanoma [None]
